FAERS Safety Report 12586924 (Version 1)
Quarter: 2016Q3

REPORT INFORMATION
  Report Type: Spontaneous
  Country: US (occurrence: None)
  Receive Date: 20160722
  Receipt Date: 20160722
  Transmission Date: 20161109
  Serious: No
  Sender: FDA-Public Use
  Company Number: None

PATIENT
  Age: 59 Year
  Sex: Male

DRUGS (8)
  1. FLOMAX [Concomitant]
     Active Substance: TAMSULOSIN HYDROCHLORIDE
  2. CALCIUM [Concomitant]
     Active Substance: CALCIUM
  3. SEROQUEL [Concomitant]
     Active Substance: QUETIAPINE FUMARATE
  4. SOLESTA [Concomitant]
     Active Substance: DEXTRANOMER\HYALURONATE SODIUM
  5. ZYTIGA [Suspect]
     Active Substance: ABIRATERONE ACETATE
     Indication: PROSTATE CANCER
     Route: 048
     Dates: start: 20151030
  6. XANAX [Concomitant]
     Active Substance: ALPRAZOLAM
  7. PREDNISONE 5 MG [Suspect]
     Active Substance: PREDNISONE
     Indication: POLYMYALGIA RHEUMATICA
     Route: 048
     Dates: start: 20151030
  8. AMBUEN [Concomitant]

REACTIONS (2)
  - Anger [None]
  - Fatigue [None]

NARRATIVE: CASE EVENT DATE: 201606
